FAERS Safety Report 6366553-1 (Version None)
Quarter: 2009Q3

REPORT INFORMATION
  Report Type: 
  Country: None (occurrence: None)
  Receive Date: 20090921
  Receipt Date: 20090911
  Transmission Date: 20100115
  Serious: Yes (Hospitalization)
  Sender: FDA-Public Use
  Company Number: US-ASTRAZENECA-2009SE12921

PATIENT
  Age: 29795 Day
  Sex: Male
  Weight: 81.4 kg

DRUGS (5)
  1. OMEPRAZOLE [Suspect]
     Indication: PEPTIC ULCER
     Route: 048
  2. ASPIRIN [Suspect]
     Indication: PAIN
     Route: 048
     Dates: end: 20090331
  3. PROBENECID [Suspect]
     Indication: HYPERURICAEMIA
     Route: 048
  4. BLINDED VACCINE TRIAL [Suspect]
     Dosage: SINGLE DOSE
     Route: 030
     Dates: start: 20081020, end: 20081020
  5. PREDNISONE [Concomitant]

REACTIONS (1)
  - GASTROINTESTINAL HAEMORRHAGE [None]
